FAERS Safety Report 12808675 (Version 2)
Quarter: 2016Q4

REPORT INFORMATION
  Report Type: Spontaneous
  Country: US (occurrence: US)
  Receive Date: 20161004
  Receipt Date: 20161027
  Transmission Date: 20170207
  Serious: Yes (Other)
  Sender: FDA-Public Use
  Company Number: US-PFIZER INC-2016456966

PATIENT
  Age: 68 Year
  Sex: Female

DRUGS (1)
  1. SILDENAFIL CITRATE. [Suspect]
     Active Substance: SILDENAFIL CITRATE
     Dosage: 20 MG, 3X/DAY
     Route: 048

REACTIONS (8)
  - Dry gangrene [Recovered/Resolved]
  - Pain [Not Recovered/Not Resolved]
  - Skin ulcer [Recovered/Resolved]
  - Drug ineffective [Unknown]
  - Scar [Not Recovered/Not Resolved]
  - Scleroderma [Unknown]
  - Peripheral vascular disorder [Recovering/Resolving]
  - Dyspnoea [Recovering/Resolving]
